FAERS Safety Report 10457899 (Version 2)
Quarter: 2014Q4

REPORT INFORMATION
  Report Type: Spontaneous
  Country: US (occurrence: US)
  Receive Date: 20140916
  Receipt Date: 20141208
  Transmission Date: 20150528
  Serious: No
  Sender: FDA-Public Use
  Company Number: US-FRI-1000070589

PATIENT
  Age: 28 Year
  Sex: Male

DRUGS (6)
  1. NUEDEXTA [Suspect]
     Active Substance: DEXTROMETHORPHAN HYDROBROMIDE\QUINIDINE SULFATE
     Indication: CRANIOCEREBRAL INJURY
     Dosage: 1-20MG/10MG CAPSULE TWICE DAILY
     Dates: start: 201405, end: 201405
  2. LITHIUM [Concomitant]
     Active Substance: LITHIUM CARBONATE
     Dates: start: 20140122
  3. DEXEDRINE [Concomitant]
     Active Substance: DEXTROAMPHETAMINE SULFATE
  4. NUEDEXTA [Suspect]
     Active Substance: DEXTROMETHORPHAN HYDROBROMIDE\QUINIDINE SULFATE
     Indication: AFFECT LABILITY
     Dosage: 1-20MG/10MG CAPSULE TWICE DAILY
     Dates: start: 20120202, end: 201405
  5. VYVANSE [Suspect]
     Active Substance: LISDEXAMFETAMINE DIMESYLATE
  6. SAPHRIS [Suspect]
     Active Substance: ASENAPINE MALEATE
     Indication: BIPOLAR DISORDER
     Dosage: 10 MG
     Dates: start: 20120202

REACTIONS (4)
  - Off label use [Unknown]
  - Urticaria [Recovered/Resolved]
  - Rash [Recovered/Resolved]
  - Swelling [Recovered/Resolved]

NARRATIVE: CASE EVENT DATE: 20120202
